FAERS Safety Report 7879416-7 (Version None)
Quarter: 2011Q4

REPORT INFORMATION
  Report Type: 
  Country: None (occurrence: None)
  Receive Date: 20111101
  Receipt Date: 20111027
  Transmission Date: 20120403
  Serious: Yes (Other)
  Sender: FDA-Public Use
  Company Number: GR-PFIZER INC-2011262157

PATIENT
  Age: 73 Year
  Sex: Male

DRUGS (2)
  1. LYRICA [Suspect]
     Indication: SCIATICA
     Dosage: 75 MG, 1X/DAY
     Route: 048
     Dates: start: 20111001, end: 20111001
  2. SINTROM [Concomitant]
     Dosage: UNK

REACTIONS (4)
  - AORTIC ANEURYSM [None]
  - GAIT DISTURBANCE [None]
  - DIZZINESS [None]
  - VOMITING [None]
